FAERS Safety Report 21844912 (Version 1)
Quarter: 2023Q1

REPORT INFORMATION
  Report Type: Report from Study
  Country: CA (occurrence: CA)
  Receive Date: 20230110
  Receipt Date: 20230110
  Transmission Date: 20230418
  Serious: Yes (Hospitalization)
  Sender: FDA-Public Use
  Company Number: CA-BAUSCH-BL-2023-000419

PATIENT
  Age: 70 Year
  Sex: Female

DRUGS (4)
  1. METFORMIN [Suspect]
     Active Substance: METFORMIN HYDROCHLORIDE
     Indication: Type 2 diabetes mellitus
     Route: 048
  2. GLICLAZIDE [Suspect]
     Active Substance: GLICLAZIDE
     Indication: Type 2 diabetes mellitus
     Route: 048
  3. VICTOZA [Suspect]
     Active Substance: LIRAGLUTIDE
     Indication: Type 2 diabetes mellitus
     Dosage: MULTIDOSE PEN-INJECTOR.    30DOSES(0.6MG)-15DOSES(1.2MG)-10DOSES(1.8MG). 1/2/3
     Route: 058
  4. VICTOZA [Suspect]
     Active Substance: LIRAGLUTIDE
     Indication: Product used for unknown indication

REACTIONS (3)
  - Loss of consciousness [Recovered/Resolved]
  - Gastrointestinal disorder [Recovered/Resolved]
  - Wrong technique in product usage process [Recovered/Resolved]
